FAERS Safety Report 24659456 (Version 1)
Quarter: 2024Q4

REPORT INFORMATION
  Report Type: Spontaneous
  Country: US (occurrence: US)
  Receive Date: 20241125
  Receipt Date: 20241125
  Transmission Date: 20250115
  Serious: No
  Sender: MARINUS PHARMACEUTICALS
  Company Number: US-MARINUS PHARMACEUTICALS, INC- MAR2024000226

PATIENT

DRUGS (1)
  1. ZTALMY [Suspect]
     Active Substance: GANAXOLONE
     Indication: Product used for unknown indication
     Dosage: 9ML BID AND 12ML AT BED TIME
     Route: 048

REACTIONS (1)
  - Alopecia [Unknown]

NARRATIVE: CASE EVENT DATE: 20240101
